FAERS Safety Report 10779361 (Version 2)
Quarter: 2019Q3

REPORT INFORMATION
  Report Type: Spontaneous
  Country: NL (occurrence: NL)
  Receive Date: 20150210
  Receipt Date: 20190710
  Transmission Date: 20191004
  Serious: Yes (Congenital Anomaly, Other)
  Sender: FDA-Public Use
  Company Number: NL-JNJFOC-20150120511

PATIENT

DRUGS (11)
  1. CYCLIZINE [Suspect]
     Active Substance: CYCLIZINE
     Indication: ANTIEMETIC SUPPORTIVE CARE
     Route: 065
  2. AMINOALKYL ETHERS [Suspect]
     Active Substance: UNSPECIFIED INGREDIENT
     Indication: NAUSEA
     Route: 064
  3. CETIRIZINE HYDROCHLORIDE. [Suspect]
     Active Substance: CETIRIZINE HYDROCHLORIDE
     Indication: VOMITING
  4. PHENOTHIAZINES [Suspect]
     Active Substance: UNSPECIFIED INGREDIENT
     Indication: VOMITING
  5. MECLIZINE [Suspect]
     Active Substance: MECLIZINE HYDROCHLORIDE
     Indication: ANTIEMETIC SUPPORTIVE CARE
     Route: 064
  6. MECLOZINE W/PYRIDOXINE [Suspect]
     Active Substance: MECLIZINE\PYRIDOXINE
     Indication: ANTIEMETIC SUPPORTIVE CARE
     Route: 064
  7. LEVOCETIRIZINE [Suspect]
     Active Substance: LEVOCETIRIZINE
     Indication: NAUSEA
     Route: 064
  8. PHENOTHIAZINES [Suspect]
     Active Substance: UNSPECIFIED INGREDIENT
     Indication: NAUSEA
     Route: 064
  9. AMINOALKYL ETHERS [Suspect]
     Active Substance: UNSPECIFIED INGREDIENT
     Indication: VOMITING
  10. CETIRIZINE HYDROCHLORIDE. [Suspect]
     Active Substance: CETIRIZINE HYDROCHLORIDE
     Indication: NAUSEA
     Route: 064
  11. LEVOCETIRIZINE [Suspect]
     Active Substance: LEVOCETIRIZINE
     Indication: VOMITING

REACTIONS (6)
  - Heart disease congenital [Unknown]
  - Ventricular septal defect [Unknown]
  - Transposition of the great vessels [Unknown]
  - Atrioventricular septal defect [Unknown]
  - Fallot^s tetralogy [Unknown]
  - Foetal exposure during pregnancy [Unknown]
